FAERS Safety Report 14557635 (Version 3)
Quarter: 2018Q3

REPORT INFORMATION
  Report Type: Spontaneous
  Country: US (occurrence: US)
  Receive Date: 20180221
  Receipt Date: 20180727
  Transmission Date: 20181010
  Serious: Yes (Life-Threatening, Hospitalization, Other)
  Sender: FDA-Public Use
  Company Number: US-AUROBINDO-AUR-APL-2018-006744

PATIENT
  Age: 49 Year
  Sex: Female

DRUGS (38)
  1. DIVALPROEX [Interacting]
     Active Substance: DIVALPROEX SODIUM
     Dosage: 1250 MG, UNK
     Route: 065
  2. RISPERIDONE. [Suspect]
     Active Substance: RISPERIDONE
     Dosage: NIGHTLY
     Route: 065
  3. CLOZAPINE. [Interacting]
     Active Substance: CLOZAPINE
     Dosage: NIGHTLY
     Route: 065
  4. HALOPERIDOL. [Suspect]
     Active Substance: HALOPERIDOL
     Dosage: 2.5 MG IN THE AFTERNOON
  5. BENZTROPINE. [Concomitant]
     Active Substance: BENZTROPINE
     Dosage: 1 MG, UNK
  6. CHLORPROMAZINE. [Concomitant]
     Active Substance: CHLORPROMAZINE
     Dosage: 50 MILLIGRAM
  7. DIVALPROEX [Interacting]
     Active Substance: DIVALPROEX SODIUM
     Dosage: NIGHTLY
     Route: 065
  8. CLOZAPINE. [Interacting]
     Active Substance: CLOZAPINE
     Dosage: NIGHTLY
     Route: 065
  9. CLOZAPINE. [Interacting]
     Active Substance: CLOZAPINE
     Dosage: NIGHTLY
     Route: 065
  10. LORAZEPAM. [Concomitant]
     Active Substance: LORAZEPAM
     Dosage: 6 MG, AS NECESSARY
     Route: 042
  11. RISPERIDONE. [Suspect]
     Active Substance: RISPERIDONE
     Indication: SCHIZOAFFECTIVE DISORDER BIPOLAR TYPE
     Dosage: 2 MILLIGRAM
     Route: 065
  12. LORAZEPAM. [Concomitant]
     Active Substance: LORAZEPAM
     Dosage: 5 MG, AS NECESSARY
     Route: 042
  13. OLANZAPINE. [Suspect]
     Active Substance: OLANZAPINE
     Indication: SCHIZOAFFECTIVE DISORDER BIPOLAR TYPE
     Dosage: 10 MILLIGRAM
     Route: 030
  14. CLOZAPINE. [Interacting]
     Active Substance: CLOZAPINE
     Dosage: NIGHTLY
     Route: 065
  15. HALOPERIDOL. [Suspect]
     Active Substance: HALOPERIDOL
     Dosage: 5 MG, DAILY (5 MG NIGHTLY)
  16. DIPHENHYDRAMINE. [Concomitant]
     Active Substance: DIPHENHYDRAMINE
     Dosage: 50 MILLIGRAM
  17. DIVALPROEX [Suspect]
     Active Substance: DIVALPROEX SODIUM
     Indication: SCHIZOAFFECTIVE DISORDER BIPOLAR TYPE
     Dosage: 500 MG, DAILY MORNING
     Route: 065
  18. RISPERIDONE. [Suspect]
     Active Substance: RISPERIDONE
     Dosage: 1 MG, UNK
     Route: 065
  19. CLOZAPINE. [Interacting]
     Active Substance: CLOZAPINE
     Indication: SCHIZOAFFECTIVE DISORDER BIPOLAR TYPE
     Dosage: 400 MG, DAILY NIGHT
     Route: 065
  20. CLOZAPINE. [Interacting]
     Active Substance: CLOZAPINE
     Dosage: NIGHTLY
     Route: 065
  21. HALOPERIDOL. [Suspect]
     Active Substance: HALOPERIDOL
     Dosage: 2 MG, AS NECESSARY
     Route: 042
  22. HALOPERIDOL. [Suspect]
     Active Substance: HALOPERIDOL
     Dosage: 4 MG, AS NECESSARY
     Route: 042
  23. FLUPHENAZINE [Suspect]
     Active Substance: FLUPHENAZINE
     Indication: SCHIZOAFFECTIVE DISORDER BIPOLAR TYPE
     Dosage: 5 MG, DAILY
     Route: 065
  24. FLUPHENAZINE [Suspect]
     Active Substance: FLUPHENAZINE
     Dosage: 15 MG, DAILY
     Route: 065
  25. DIPHENHYDRAMINE. [Concomitant]
     Active Substance: DIPHENHYDRAMINE
     Dosage: 50 MILLIGRAM
  26. CHLORPROMAZINE. [Concomitant]
     Active Substance: CHLORPROMAZINE
     Dosage: 50 MILLIGRAM
  27. LORAZEPAM. [Concomitant]
     Active Substance: LORAZEPAM
     Dosage: 3 MG, AS NECESSARY
     Route: 042
  28. CLOZAPINE. [Interacting]
     Active Substance: CLOZAPINE
     Dosage: NIGHTLY
     Route: 065
  29. DIPHENHYDRAMINE. [Concomitant]
     Active Substance: DIPHENHYDRAMINE
     Indication: SCHIZOAFFECTIVE DISORDER
     Dosage: AS NECESSARY
     Route: 042
  30. DIPHENHYDRAMINE. [Concomitant]
     Active Substance: DIPHENHYDRAMINE
     Dosage: AS NECESSARY
     Route: 042
  31. LORAZEPAM. [Concomitant]
     Active Substance: LORAZEPAM
     Dosage: 2 MG, UNK
  32. DIVALPROEX [Interacting]
     Active Substance: DIVALPROEX SODIUM
     Dosage: EXTENDED RELEASE
     Route: 065
  33. CLOZAPINE. [Interacting]
     Active Substance: CLOZAPINE
     Dosage: NIGHTLY
     Route: 065
  34. RISPERDAL CONSTA [Suspect]
     Active Substance: RISPERIDONE
     Indication: SCHIZOAFFECTIVE DISORDER BIPOLAR TYPE
     Dosage: 50 MG/ 12 HOURS
     Route: 030
  35. HALOPERIDOL. [Suspect]
     Active Substance: HALOPERIDOL
     Indication: SCHIZOAFFECTIVE DISORDER BIPOLAR TYPE
     Dosage: 2.5 MG, DAILY
  36. BENZTROPINE. [Concomitant]
     Active Substance: BENZTROPINE
     Indication: SCHIZOAFFECTIVE DISORDER BIPOLAR TYPE
     Dosage: 2 MILLIGRAM
  37. SERTRALINE [Concomitant]
     Active Substance: SERTRALINE HYDROCHLORIDE
     Indication: PRODUCT USED FOR UNKNOWN INDICATION
     Dosage: 100 MG, UNK
     Route: 065
  38. LORAZEPAM. [Concomitant]
     Active Substance: LORAZEPAM
     Dosage: 4 MG, AS NECESSARY
     Route: 042

REACTIONS (9)
  - Drug interaction [Unknown]
  - Electrocardiogram QT prolonged [Recovered/Resolved]
  - Sepsis [Recovering/Resolving]
  - Pneumonia aspiration [Recovering/Resolving]
  - Torsade de pointes [Recovered/Resolved]
  - Metabolic disorder [Recovered/Resolved]
  - Sedation [Recovering/Resolving]
  - Cardiac arrest [Recovered/Resolved]
  - Salivary hypersecretion [Unknown]
